FAERS Safety Report 6095100-7 (Version None)
Quarter: 2009Q1

REPORT INFORMATION
  Report Type: 
  Country: None (occurrence: None)
  Receive Date: 20090227
  Receipt Date: 20080205
  Transmission Date: 20090719
  Serious: No
  Sender: FDA-Public Use
  Company Number: A0704130A

PATIENT
  Age: 81 Year
  Sex: Female
  Weight: 59.1 kg

DRUGS (3)
  1. LAMICTAL [Suspect]
     Indication: BIPOLAR DISORDER
     Dosage: 25MG PER DAY
     Route: 048
     Dates: start: 20071120, end: 20080110
  2. LEXAPRO [Concomitant]
  3. WELLBUTRIN SR [Concomitant]

REACTIONS (2)
  - INFECTION [None]
  - RASH [None]
